FAERS Safety Report 17326220 (Version 4)
Quarter: 2020Q2

REPORT INFORMATION
  Report Type: Spontaneous
  Country: US (occurrence: US)
  Receive Date: 20200127
  Receipt Date: 20200603
  Transmission Date: 20200713
  Serious: No
  Sender: FDA-Public Use
  Company Number: US-PFIZER INC-2020032609

PATIENT
  Age: 97 Year
  Sex: Female
  Weight: 50 kg

DRUGS (3)
  1. CELEBREX [Suspect]
     Active Substance: CELECOXIB
     Indication: MUSCULOSKELETAL STIFFNESS
     Dosage: 100 MG, 1X/DAY
     Route: 048
  2. LOSARTAN. [Concomitant]
     Active Substance: LOSARTAN
     Indication: HYPERTENSION
     Dosage: 50 MG, 1X/DAY
  3. MECLIZINE [Concomitant]
     Active Substance: MECLIZINE HYDROCHLORIDE
     Indication: DIZZINESS
     Dosage: 0.5 DF, AS NEEDED

REACTIONS (7)
  - Hypoacusis [Unknown]
  - Tremor [Unknown]
  - Dysstasia [Unknown]
  - Off label use [Unknown]
  - Fall [Unknown]
  - Vertigo [Unknown]
  - Product use in unapproved indication [Unknown]

NARRATIVE: CASE EVENT DATE: 202001
